FAERS Safety Report 16719234 (Version 1)
Quarter: 2019Q3

REPORT INFORMATION
  Report Type: Spontaneous
  Country: ES (occurrence: ES)
  Receive Date: 20190820
  Receipt Date: 20190820
  Transmission Date: 20191005
  Serious: Yes (Hospitalization)
  Sender: FDA-Public Use
  Company Number: ES-ALVOGEN-2019-ALVOGEN-101041

PATIENT
  Age: 36 Year
  Sex: Male

DRUGS (1)
  1. OXYCODONE [Suspect]
     Active Substance: OXYCODONE
     Indication: SPINAL PAIN

REACTIONS (2)
  - Drug withdrawal syndrome [Recovering/Resolving]
  - Psychotic disorder [Recovering/Resolving]
